FAERS Safety Report 4354943-8 (Version None)
Quarter: 2004Q2

REPORT INFORMATION
  Report Type: 
  Country: None (occurrence: None)
  Receive Date: 20040504
  Receipt Date: 20040421
  Transmission Date: 20050107
  Serious: Yes (Other)
  Sender: FDA-Public Use
  Company Number: 2004027264

PATIENT
  Sex: Female

DRUGS (5)
  1. ATARAX [Suspect]
     Indication: EPILEPSY
     Dates: start: 19580101
  2. HYDROXYZINE [Suspect]
  3. PHENOBARBITAL TAB [Concomitant]
  4. VALSARTAN (VALSARTAN) [Concomitant]
  5. AMLODIPINE BESYLATE [Concomitant]

REACTIONS (9)
  - BODY HEIGHT DECREASED [None]
  - DRUG INEFFECTIVE [None]
  - INJURY [None]
  - INSOMNIA [None]
  - MUSCLE CRAMP [None]
  - PHARMACEUTICAL PRODUCT COMPLAINT [None]
  - SPINAL CORD COMPRESSION [None]
  - SPINAL FRACTURE [None]
  - WEIGHT INCREASED [None]
